FAERS Safety Report 4562671-9 (Version None)
Quarter: 2005Q1

REPORT INFORMATION
  Report Type: 
  Country: None (occurrence: None)
  Receive Date: 20050124
  Receipt Date: 20050110
  Transmission Date: 20050727
  Serious: Yes (Death)
  Sender: FDA-Public Use
  Company Number: 2005011390

PATIENT
  Age: 68 Year
  Sex: Male

DRUGS (10)
  1. GABAPENTIN [Suspect]
     Indication: NEURALGIA
     Dosage: 400 MG (100 MG, 4 IN 1 D), ORAL
     Route: 048
     Dates: end: 20040930
  2. OXYCODONE HCL [Suspect]
     Indication: ILL-DEFINED DISORDER
     Dosage: 240 MG (120 MG, 2 IN 1 DAY), ORAL
     Route: 048
     Dates: start: 20040923, end: 20040924
  3. OXYCODONE HCL [Concomitant]
  4. CLAVULIN (AMOXICILLIN TRIHYDRATE, CLAVULANATE POTASSIUM) [Concomitant]
  5. ATORVASTATIN (ATORVASTATIN) [Concomitant]
  6. ESOMEPRAZOLE (ESOMEPRAZOLE) [Concomitant]
  7. AMITRIPTYLINE HCL [Concomitant]
  8. DICLOFENAC (DICLOFENAC) [Concomitant]
  9. DEXAMETHASONE [Concomitant]
  10. ATENOLOL [Concomitant]

REACTIONS (2)
  - SEDATION [None]
  - SOMNOLENCE [None]
